FAERS Safety Report 4359899-X (Version None)
Quarter: 2004Q2

REPORT INFORMATION
  Report Type: 
  Country: None (occurrence: None)
  Receive Date: 20040518
  Receipt Date: 20040518
  Transmission Date: 20050107
  Serious: Yes (Other)
  Sender: FDA-Public Use
  Company Number: None

PATIENT
  Sex: Male
  Weight: 80.2867 kg

DRUGS (2)
  1. PAXIL [Suspect]
     Indication: DEPRESSION
     Dosage: 40 MG QD ORAL
     Route: 048
     Dates: start: 20031204, end: 20040222
  2. PAXIL [Suspect]
     Indication: DEPRESSION
     Dosage: 20 MG QD ORAL
     Route: 048
     Dates: start: 20010524, end: 20041204

REACTIONS (1)
  - SUICIDAL IDEATION [None]
